FAERS Safety Report 23981242 (Version 1)
Quarter: 2024Q2

REPORT INFORMATION
  Report Type: Spontaneous
  Country: NO (occurrence: NO)
  Receive Date: 20240617
  Receipt Date: 20240617
  Transmission Date: 20240715
  Serious: Yes (Other)
  Sender: FDA-Public Use
  Company Number: NO-EMA-DD-20240603-7482707-131816

PATIENT
  Age: 64 Year
  Sex: Male

DRUGS (2)
  1. BICALUTAMIDE [Suspect]
     Active Substance: BICALUTAMIDE
     Indication: Antiandrogen therapy
     Dates: start: 202003, end: 202101
  2. APALUTAMIDE [Suspect]
     Active Substance: APALUTAMIDE
     Indication: Antiandrogen therapy
     Dates: start: 202101

REACTIONS (4)
  - Muscle spasms [Recovered/Resolved]
  - Renal failure [Recovered/Resolved]
  - Renal impairment [Recovered/Resolved]
  - Myalgia [Recovered/Resolved]
